FAERS Safety Report 24996312 (Version 2)
Quarter: 2025Q1

REPORT INFORMATION
  Report Type: Spontaneous
  Country: US (occurrence: US)
  Receive Date: 20250221
  Receipt Date: 20250324
  Transmission Date: 20250409
  Serious: No
  Sender: PFIZER
  Company Number: US-PFIZER INC-PV202400137198

PATIENT
  Age: 27 Year
  Sex: Female
  Weight: 60.771 kg

DRUGS (3)
  1. ADCETRIS [Suspect]
     Active Substance: BRENTUXIMAB VEDOTIN
     Dates: start: 20240719, end: 202411
  2. ADCETRIS [Suspect]
     Active Substance: BRENTUXIMAB VEDOTIN
     Dates: start: 20240719, end: 20241111
  3. ADCETRIS [Suspect]
     Active Substance: BRENTUXIMAB VEDOTIN

REACTIONS (2)
  - Off label use [Unknown]
  - Weight decreased [Unknown]
